FAERS Safety Report 12825265 (Version 1)
Quarter: 2016Q4

REPORT INFORMATION
  Report Type: Spontaneous
  Country: US (occurrence: US)
  Receive Date: 20161006
  Receipt Date: 20161006
  Transmission Date: 20170207
  Serious: No
  Sender: FDA-Public Use
  Company Number: US-PFIZER INC-2016463431

PATIENT
  Age: 24 Year
  Sex: Female

DRUGS (6)
  1. PRIMIDONE. [Suspect]
     Active Substance: PRIMIDONE
     Dosage: UNK
  2. PHENYTOIN SODIUM. [Suspect]
     Active Substance: PHENYTOIN SODIUM
     Dosage: UNK
  3. VIMPAT [Suspect]
     Active Substance: LACOSAMIDE
     Dosage: UNK
  4. KEPPRA [Suspect]
     Active Substance: LEVETIRACETAM
     Dosage: UNK
  5. ONFI [Suspect]
     Active Substance: CLOBAZAM
     Dosage: 80 MG, DAILY
     Dates: start: 20160829, end: 20160901
  6. ONFI [Suspect]
     Active Substance: CLOBAZAM
     Indication: COMPLEX PARTIAL SEIZURES
     Dosage: 40 MG, DAILY 40 MG (20 MG , 2 IN 1 D)
     Dates: start: 201403

REACTIONS (2)
  - Accidental overdose [Recovered/Resolved]
  - Somnolence [Unknown]

NARRATIVE: CASE EVENT DATE: 20160829
